FAERS Safety Report 6413151-7 (Version None)
Quarter: 2009Q4

REPORT INFORMATION
  Report Type: 
  Country: None (occurrence: None)
  Receive Date: 20091022
  Receipt Date: 20091022
  Transmission Date: 20100525
  Serious: Yes (Disabling)
  Sender: FDA-Public Use
  Company Number: None

PATIENT
  Age: 68 Year
  Sex: Male

DRUGS (1)
  1. AMIODARONE HCL [Suspect]
     Dosage: 200 MG BID PO
     Route: 048
     Dates: start: 20090720

REACTIONS (2)
  - CARBON MONOXIDE DIFFUSING CAPACITY DECREASED [None]
  - INTERSTITIAL LUNG DISEASE [None]
